FAERS Safety Report 25652248 (Version 2)
Quarter: 2025Q3

REPORT INFORMATION
  Report Type: Report from Study
  Country: US (occurrence: US)
  Receive Date: 20250807
  Receipt Date: 20250820
  Transmission Date: 20251021
  Serious: Yes (Life-Threatening, Hospitalization, Other)
  Sender: CSL BEHRING
  Company Number: US-BEH-2024178147

PATIENT
  Age: 62 Year
  Sex: Male

DRUGS (5)
  1. BERINERT [Suspect]
     Active Substance: HUMAN C1-ESTERASE INHIBITOR
     Indication: Hereditary angioedema
     Dosage: 6300 IU/KG, BIW
     Route: 058
     Dates: start: 20240830, end: 20240830
  2. BERINERT [Suspect]
     Active Substance: HUMAN C1-ESTERASE INHIBITOR
     Indication: Prophylaxis
     Dosage: 6300 IU/KG, BIW
     Route: 058
  3. BERINERT [Suspect]
     Active Substance: HUMAN C1-ESTERASE INHIBITOR
     Dosage: 5000 IU
     Route: 058
  4. FIRAZYR [Concomitant]
     Active Substance: ICATIBANT ACETATE
  5. ICATIBANT [Concomitant]
     Active Substance: ICATIBANT ACETATE

REACTIONS (10)
  - Hereditary angioedema [Unknown]
  - Hereditary angioedema [Unknown]
  - Insurance issue [Unknown]
  - Hereditary angioedema [Unknown]
  - Dyspnoea [Unknown]
  - Dysphagia [Unknown]
  - Inability to afford medication [Unknown]
  - Headache [Recovering/Resolving]
  - Heart rate decreased [Unknown]
  - Blood pressure abnormal [Unknown]

NARRATIVE: CASE EVENT DATE: 20250101
